FAERS Safety Report 8828039 (Version 2)
Quarter: 2013Q1

REPORT INFORMATION
  Report Type: Spontaneous
  Country: US (occurrence: US)
  Receive Date: 20121005
  Receipt Date: 20130228
  Transmission Date: 20140127
  Serious: Yes (Hospitalization)
  Sender: FDA-Public Use
  Company Number: US-CELGENEUS-163-21880-12052422

PATIENT
  Age: 69 Year
  Sex: Female

DRUGS (3)
  1. REVLIMID [Suspect]
     Indication: PLASMA CELL MYELOMA
     Dosage: 25 MILLIGRAM
     Route: 048
     Dates: start: 201109
  2. REVLIMID [Suspect]
     Dosage: 25 MILLIGRAM
     Route: 048
     Dates: start: 201205
  3. REVLIMID [Suspect]
     Dosage: 25 MILLIGRAM
     Route: 048
     Dates: start: 20120613

REACTIONS (9)
  - Osteoarthritis [Unknown]
  - Asthma [Unknown]
  - Vitamin D decreased [Unknown]
  - Vitamin K decreased [Unknown]
  - Blood magnesium decreased [Unknown]
  - Bronchial disorder [Unknown]
  - Malaise [Unknown]
  - Alopecia [Unknown]
  - Hair growth abnormal [Unknown]
